FAERS Safety Report 14725528 (Version 1)
Quarter: 2018Q2

REPORT INFORMATION
  Report Type: Spontaneous
  Country: FR (occurrence: FR)
  Receive Date: 20180405
  Receipt Date: 20180405
  Transmission Date: 20180711
  Serious: Yes (Other)
  Sender: FDA-Public Use
  Company Number: FR-BAXTER-2018BAX010639

PATIENT
  Age: 85 Year
  Sex: Male

DRUGS (1)
  1. ENDOXAN 50 MG, COMPRIM? ENROB? [Suspect]
     Active Substance: CYCLOPHOSPHAMIDE
     Indication: PEMPHIGOID
     Route: 048
     Dates: start: 20170315, end: 20171102

REACTIONS (1)
  - Optic neuropathy [Recovering/Resolving]

NARRATIVE: CASE EVENT DATE: 201706
